FAERS Safety Report 12477759 (Version 4)
Quarter: 2016Q3

REPORT INFORMATION
  Report Type: Spontaneous
  Country: US (occurrence: US)
  Receive Date: 20160617
  Receipt Date: 20160906
  Transmission Date: 20161109
  Serious: No
  Sender: FDA-Public Use
  Company Number: US-BAYER-2016-111590

PATIENT
  Age: 68 Year
  Sex: Female
  Weight: 68.5 kg

DRUGS (5)
  1. BETACONNECT [Suspect]
     Active Substance: DEVICE
     Indication: DEVICE THERAPY
  2. AMPYRA [Concomitant]
     Active Substance: DALFAMPRIDINE
     Indication: GAIT DISTURBANCE
     Dosage: 10 MG, BID
     Route: 048
     Dates: start: 2012
  3. BETASERON [Suspect]
     Active Substance: INTERFERON BETA-1B
     Indication: MULTIPLE SCLEROSIS
     Dosage: 8 MIU, QOD
     Route: 058
     Dates: start: 20160101, end: 20160401
  4. AMPYRA [Concomitant]
     Active Substance: DALFAMPRIDINE
     Indication: GAIT DISTURBANCE
     Dosage: 10 MG, HS
     Route: 048
     Dates: start: 201605, end: 2016
  5. AMPYRA [Concomitant]
     Active Substance: DALFAMPRIDINE
     Indication: GAIT DISTURBANCE
     Dosage: 10 MG, QD
     Route: 048

REACTIONS (7)
  - Device difficult to use [Unknown]
  - Injection site haematoma [Recovered/Resolved]
  - Circumstance or information capable of leading to device use error [None]
  - Injection site pain [None]
  - Device intolerance [None]
  - Injection site pain [Unknown]
  - Dizziness [Recovered/Resolved]

NARRATIVE: CASE EVENT DATE: 201601
